FAERS Safety Report 8776431 (Version 1)
Quarter: 2012Q4

REPORT INFORMATION
  Report Type: 
  Country: DE (occurrence: DE)
  Receive Date: 20120910
  Receipt Date: 20120910
  Transmission Date: 20130627
  Serious: Yes (Other)
  Sender: FDA-Public Use
  Company Number: GXKR2012DE002838

PATIENT
  Age: 37 Year
  Sex: Female
  Weight: 79.5 kg

DRUGS (4)
  1. FLUOXETINE [Suspect]
     Indication: BORDERLINE PERSONALITY DISORDER
     Dosage: 40 [mg/d ]/ slow dosage reduction to 10 mg, shortly stopped before delivery, gw 0.-38.1 gw
     Route: 048
     Dates: start: 20091113, end: 20100807
  2. FOLIC ACID [Concomitant]
     Indication: PROPHYLAXIS OF NEURAL TUBE DEFECT
     Dosage: 0.8 mg/day (gw 0 to gw 27)
     Route: 048
  3. IODINE [Concomitant]
     Indication: PROPHYLAXIS OF NEURAL TUBE DEFECT
     Dosage: UNK, (gw 0 to gw 27)
     Route: 048
  4. PROSTAGLANDINS [Concomitant]
     Indication: LABOUR INDUCTION

REACTIONS (3)
  - Cervical incompetence [Unknown]
  - Threatened labour [Unknown]
  - Maternal exposure during pregnancy [Unknown]
